FAERS Safety Report 6462525-7 (Version None)
Quarter: 2009Q4

REPORT INFORMATION
  Report Type: 
  Country: None (occurrence: None)
  Receive Date: 20091124
  Receipt Date: 20091117
  Transmission Date: 20100525
  Serious: Yes (Life-Threatening, Hospitalization, Other)
  Sender: FDA-Public Use
  Company Number: TPA2009A03571

PATIENT
  Age: 41 Year
  Sex: Female
  Weight: 54.4316 kg

DRUGS (5)
  1. KAPIDEX [Suspect]
     Indication: GASTROOESOPHAGEAL REFLUX DISEASE
     Dosage: 60 MG, ONCE, PER ORAL
     Route: 048
     Dates: start: 20091030, end: 20091030
  2. H1N1 VACCINE (VACCINES) [Suspect]
     Indication: IMMUNISATION
     Dosage: ONCE, INJECTION
     Dates: start: 20091029, end: 20091029
  3. MULTIVITAMIN (MULTIVITAMINS, PLAIN) [Concomitant]
  4. NECON (ETHINYLESTRADIOL, NORETHISTERONE) [Concomitant]
  5. UNKNOWN BIRTH CONTROL PILLS (ORAL CONTRACEPTIVE NOS) [Concomitant]

REACTIONS (19)
  - ALLERGY TO VACCINE [None]
  - ANAPHYLACTIC SHOCK [None]
  - ATELECTASIS [None]
  - BACK PAIN [None]
  - BLOOD POTASSIUM DECREASED [None]
  - BLOOD PRESSURE SYSTOLIC DECREASED [None]
  - CAPSULE ISSUE [None]
  - DIZZINESS [None]
  - ELECTROCARDIOGRAM ST SEGMENT DEPRESSION [None]
  - FALL [None]
  - HYPOXIA [None]
  - LIP SWELLING [None]
  - LOSS OF CONSCIOUSNESS [None]
  - PALPITATIONS [None]
  - PLEURAL EFFUSION [None]
  - REACTION TO DRUG EXCIPIENTS [None]
  - RESPIRATORY ARREST [None]
  - UNRESPONSIVE TO STIMULI [None]
  - WHITE BLOOD CELL COUNT INCREASED [None]
